FAERS Safety Report 4806458-8 (Version None)
Quarter: 2005Q4

REPORT INFORMATION
  Report Type: 
  Country: None (occurrence: None)
  Receive Date: 20051019
  Receipt Date: 20051006
  Transmission Date: 20060501
  Serious: Yes (Hospitalization)
  Sender: FDA-Public Use
  Company Number: 2005061362

PATIENT
  Sex: Female

DRUGS (1)
  1. BEXTRA [Suspect]
     Indication: PAIN
     Dosage: 1/2 TAB DAILY (20 MG), ORAL
     Route: 048
     Dates: start: 20040428, end: 20040501

REACTIONS (2)
  - CHOLECYSTECTOMY [None]
  - VOMITING [None]
